FAERS Safety Report 18141552 (Version 1)
Quarter: 2020Q3

REPORT INFORMATION
  Report Type: Spontaneous
  Country: US (occurrence: US)
  Receive Date: 20200812
  Receipt Date: 20200812
  Transmission Date: 20201103
  Serious: No
  Sender: FDA-Public Use
  Company Number: US-PERRIGO-20US006441

PATIENT
  Age: 75 Year
  Sex: Female
  Weight: 66.67 kg

DRUGS (2)
  1. PROMETHAZINE HYDROCHLORIDE. [Suspect]
     Active Substance: PROMETHAZINE HYDROCHLORIDE
     Indication: NAUSEA
     Dosage: 1 SUPPOSITORY, Q6H
     Route: 054
     Dates: start: 202004, end: 20200428
  2. PROMETHAZINE HYDROCHLORIDE. [Suspect]
     Active Substance: PROMETHAZINE HYDROCHLORIDE
     Indication: VOMITING
     Dosage: 1 SUPPOSITORY, Q6H
     Route: 054
     Dates: start: 20200428

REACTIONS (1)
  - Underdose [Not Recovered/Not Resolved]

NARRATIVE: CASE EVENT DATE: 20200428
